FAERS Safety Report 11100252 (Version 1)
Quarter: 2015Q2

REPORT INFORMATION
  Report Type: Spontaneous
  Country: US (occurrence: None)
  Receive Date: 20150507
  Receipt Date: 20150507
  Transmission Date: 20150821
  Serious: No
  Sender: FDA-Public Use
  Company Number: None

PATIENT
  Age: 51 Year
  Sex: Female
  Weight: 84.82 kg

DRUGS (8)
  1. HYDROCODONE BITARTRATE AND ACETAMINOPHEN [Suspect]
     Active Substance: ACETAMINOPHEN\HYDROCODONE BITARTRATE
     Indication: PAIN
     Dosage: 4XDAY WHEN NEEDED, FOUR TIMES DAILY, TAKEN BY MOUTH
     Route: 048
  2. HYDROCODONE BITARTRATE AND ACETAMINOPHEN [Suspect]
     Active Substance: ACETAMINOPHEN\HYDROCODONE BITARTRATE
     Indication: RHEUMATOID ARTHRITIS
     Dosage: 4XDAY WHEN NEEDED, FOUR TIMES DAILY, TAKEN BY MOUTH
     Route: 048
  3. HYDROCODONE BITARTRATE AND ACETAMINOPHEN [Suspect]
     Active Substance: ACETAMINOPHEN\HYDROCODONE BITARTRATE
     Indication: INTERVERTEBRAL DISC PROTRUSION
     Dosage: 4XDAY WHEN NEEDED, FOUR TIMES DAILY, TAKEN BY MOUTH
     Route: 048
  4. HYDROCODONE BITARTRATE AND ACETAMINOPHEN [Suspect]
     Active Substance: ACETAMINOPHEN\HYDROCODONE BITARTRATE
     Indication: SCOLIOSIS
     Dosage: 4XDAY WHEN NEEDED, FOUR TIMES DAILY, TAKEN BY MOUTH
     Route: 048
  5. RESORIL [Concomitant]
  6. VITAMIN D B12 [Concomitant]
  7. HYDROCODONE/ACETAMINOPHEN [Concomitant]
     Active Substance: ACETAMINOPHEN\HYDROCODONE
  8. XANAX [Concomitant]
     Active Substance: ALPRAZOLAM

REACTIONS (8)
  - Chest pain [None]
  - Headache [None]
  - Dizziness [None]
  - Musculoskeletal pain [None]
  - Bedridden [None]
  - Drug ineffective [None]
  - Product quality issue [None]
  - Nausea [None]

NARRATIVE: CASE EVENT DATE: 20150503
